FAERS Safety Report 23575614 (Version 1)
Quarter: 2024Q1

REPORT INFORMATION
  Report Type: Spontaneous
  Country: NL (occurrence: NL)
  Receive Date: 20240228
  Receipt Date: 20240228
  Transmission Date: 20240409
  Serious: Yes (Other)
  Sender: FDA-Public Use
  Company Number: None

PATIENT
  Sex: Female
  Weight: 68.7 kg

DRUGS (2)
  1. BETAMETHASONE [Suspect]
     Active Substance: BETAMETHASONE\BETAMETHASONE DIPROPIONATE
     Indication: Eczema
     Dosage: 4 X PER WEEK, BRAND NAME NOT SPECIFIED
     Route: 065
     Dates: start: 20030101, end: 20231123
  2. CORTICOSTEROID NOS [Concomitant]
     Active Substance: CORTICOSTEROID NOS
     Indication: Product used for unknown indication
     Route: 065

REACTIONS (7)
  - Steroid dependence [Recovering/Resolving]
  - Erythema [Recovering/Resolving]
  - Pruritus [Recovering/Resolving]
  - Maternal exposure during pregnancy [Unknown]
  - Topical steroid withdrawal reaction [Recovering/Resolving]
  - Skin swelling [Recovering/Resolving]
  - Skin discharge [Recovering/Resolving]
